FAERS Safety Report 10993486 (Version 1)
Quarter: 2015Q2

REPORT INFORMATION
  Report Type: Spontaneous
  Country: PL (occurrence: PL)
  Receive Date: 20150407
  Receipt Date: 20150407
  Transmission Date: 20150821
  Serious: Yes (Life-Threatening, Hospitalization)
  Sender: FDA-Public Use
  Company Number: PL-ACCORD-029779

PATIENT
  Age: 29 Year
  Sex: Male

DRUGS (4)
  1. CISPLATIN. [Suspect]
     Active Substance: CISPLATIN
     Indication: GERM CELL CANCER
     Dosage: FIRST CHEMOTHERAPY?CYCLE
  2. BLEOMYCIN [Suspect]
     Active Substance: BLEOMYCIN SULFATE
     Indication: GERM CELL CANCER
     Dosage: FIRST CHEMOTHERAPY?CYCLE
  3. ETOPOSIDE. [Suspect]
     Active Substance: ETOPOSIDE
     Indication: GERM CELL CANCER
     Dosage: FIRST CHEMOTHERAPY?CYCLE
  4. ENOXAPARIN [Concomitant]
     Active Substance: ENOXAPARIN
     Indication: PROPHYLAXIS
     Route: 058

REACTIONS (7)
  - Cardio-respiratory arrest [Unknown]
  - Neutropenia [Unknown]
  - Infection [Unknown]
  - Off label use [Unknown]
  - Arrhythmia [Recovered/Resolved]
  - Pulmonary embolism [Unknown]
  - Ventricular tachycardia [Recovered/Resolved]
